FAERS Safety Report 8904669 (Version 1)
Quarter: 2012Q4

REPORT INFORMATION
  Report Type: 
  Country: CA (occurrence: CA)
  Receive Date: 20121113
  Receipt Date: 20121113
  Transmission Date: 20130627
  Serious: Yes (Other)
  Sender: FDA-Public Use
  Company Number: PHHY2012CA102897

PATIENT
  Age: 48 Year
  Sex: Female
  Weight: 64.85 kg

DRUGS (10)
  1. LORAZEPAM [Concomitant]
  2. DITROPAN [Concomitant]
     Dosage: 5 mg, UNK
  3. GILENYA [Suspect]
     Indication: RELAPSING-REMITTING MULTIPLE SCLEROSIS
     Dosage: 0.5 mg, QD
     Route: 048
     Dates: start: 201109, end: 201201
  4. GILENYA [Suspect]
     Dosage: 0.5 mg, QD
     Route: 048
     Dates: start: 20120216, end: 20120616
  5. AMITRIPTYLINE [Concomitant]
     Dosage: 20 mg, UNK
  6. ATIVAN [Concomitant]
  7. OXYBUTYN [Concomitant]
  8. CODEINE [Concomitant]
  9. MORPHINE [Concomitant]
  10. DEMEROL [Concomitant]

REACTIONS (4)
  - Thyroid function test abnormal [Recovered/Resolved]
  - White blood cell count decreased [Not Recovered/Not Resolved]
  - Blood pressure increased [Not Recovered/Not Resolved]
  - Blood iron decreased [Unknown]
